FAERS Safety Report 20830561 (Version 1)
Quarter: 2022Q2

REPORT INFORMATION
  Report Type: Spontaneous
  Country: AU (occurrence: AU)
  Receive Date: 20220514
  Receipt Date: 20220514
  Transmission Date: 20220721
  Serious: Yes (Other)
  Sender: FDA-Public Use
  Company Number: AU-BAXTER-2022BAX009727

PATIENT
  Sex: Female

DRUGS (8)
  1. DOXORUBICIN [Suspect]
     Active Substance: DOXORUBICIN
     Indication: Splenic marginal zone lymphoma
     Dosage: 6 CYCLES OF R CHOP, 6 YEARS AGO
     Route: 065
  2. CYCLOPHOSPHAMIDE [Suspect]
     Active Substance: CYCLOPHOSPHAMIDE
     Indication: Splenic marginal zone lymphoma
     Dosage: 6 CYCLES OF R CHOP, 6 YEARS AGO
     Route: 065
  3. RITUXIMAB [Suspect]
     Active Substance: RITUXIMAB
     Indication: Splenic marginal zone lymphoma
     Dosage: 6 CYCLES OF R CHOP, 6 YEARS AGO
     Route: 065
  4. RITUXIMAB [Suspect]
     Active Substance: RITUXIMAB
     Dosage: 4 CYCLES OF R HHAC
     Route: 065
  5. VINCRISTINE [Suspect]
     Active Substance: VINCRISTINE
     Indication: Splenic marginal zone lymphoma
     Dosage: 6 CYCLES OF R CHOP, 6 YEARS AGO
     Route: 065
  6. PREDNISOLONE [Suspect]
     Active Substance: PREDNISOLONE
     Indication: Splenic marginal zone lymphoma
     Dosage: 6 CYCLES OF R CHOP, 6 YEARS AGO
     Route: 065
  7. BENDAMUSTINE [Suspect]
     Active Substance: BENDAMUSTINE
     Indication: Splenic marginal zone lymphoma
     Dosage: 4 CYCLES OF R HHAC
     Route: 065
  8. CYTARABINE [Suspect]
     Active Substance: CYTARABINE
     Indication: Splenic marginal zone lymphoma
     Dosage: 4 CYCLES OF R HHAC
     Route: 065

REACTIONS (5)
  - Plasma cell myeloma refractory [Unknown]
  - Bronchiectasis [Unknown]
  - Metastases to lung [Unknown]
  - Metastases to bone marrow [Unknown]
  - Pulmonary function test decreased [Unknown]
